FAERS Safety Report 10308722 (Version 1)
Quarter: 2014Q3

REPORT INFORMATION
  Report Type: Spontaneous
  Country: US (occurrence: None)
  Receive Date: 20140715
  Receipt Date: 20140715
  Transmission Date: 20150326
  Serious: Yes (Life-Threatening)
  Sender: FDA-Public Use
  Company Number: None

PATIENT
  Age: 40 Year
  Sex: Male
  Weight: 74.5 kg

DRUGS (3)
  1. MENINGOCOCCAL POLYSACCHARIDE VACCINE A NOS [Concomitant]
     Active Substance: MENINGOCOCCAL POLYSACCHARIDE VACCINE A\NEISSERIA MENINGITIDIS GROUP A CAPSULAR POLYSACCHARIDE ANTIGEN
  2. BACTRIM [Suspect]
     Active Substance: SULFAMETHOXAZOLE\TRIMETHOPRIM
     Dosage: 1 TABLET
     Route: 048
     Dates: start: 20140702, end: 20140709
  3. MMR VACCINE [Concomitant]
     Active Substance: MEASLES-MUMPS-RUBELLA VIRUS VACCINE, LIVE

REACTIONS (17)
  - Conjunctival haemorrhage [None]
  - Oropharyngeal pain [None]
  - Viral rash [None]
  - Feeling cold [None]
  - Conjunctivitis [None]
  - Erythema [None]
  - Rash [None]
  - Dysphagia [None]
  - Erythema multiforme [None]
  - Stevens-Johnson syndrome [None]
  - Toxic epidermal necrolysis [None]
  - Measles [None]
  - Pyrexia [None]
  - Malaise [None]
  - Hyperkeratosis [None]
  - Pain of skin [None]
  - Rash papular [None]

NARRATIVE: CASE EVENT DATE: 20140710
